FAERS Safety Report 9376632 (Version 1)
Quarter: 2013Q2

REPORT INFORMATION
  Report Type: Spontaneous
  Country: US (occurrence: None)
  Receive Date: 20130628
  Receipt Date: 20130628
  Transmission Date: 20140414
  Serious: Yes (Other)
  Sender: FDA-Public Use
  Company Number: None

PATIENT
  Age: 84 Year
  Sex: Female

DRUGS (1)
  1. XELODA [Suspect]
     Indication: COLON CANCER
     Dosage: 1500MG (7 DAYS ON, 7 DAYS OFF) TWICE DAILY BY MOUTH
     Route: 048
     Dates: start: 20130305, end: 20130625

REACTIONS (2)
  - Onychomadesis [None]
  - Memory impairment [None]
